FAERS Safety Report 18568864 (Version 3)
Quarter: 2021Q1

REPORT INFORMATION
  Report Type: Spontaneous
  Country: US (occurrence: US)
  Receive Date: 20201202
  Receipt Date: 20210107
  Transmission Date: 20210419
  Serious: No
  Sender: FDA-Public Use
  Company Number: US-LUPIN PHARMACEUTICALS INC.-2020-09530

PATIENT
  Sex: Male

DRUGS (3)
  1. GLUCOSAMINE [Concomitant]
     Active Substance: GLUCOSAMINE
     Indication: PRODUCT USED FOR UNKNOWN INDICATION
     Dosage: UNK
     Route: 065
  2. TESTOSTERONE GEL 1.62% [Suspect]
     Active Substance: TESTOSTERONE
     Dosage: 1.62 PERCENT
     Route: 065
  3. TESTOSTERONE GEL 1.62% [Suspect]
     Active Substance: TESTOSTERONE
     Indication: ANDROGEN DEFICIENCY
     Dosage: 1.62 PERCENT
     Route: 065

REACTIONS (2)
  - Product quality issue [Unknown]
  - Blood testosterone decreased [Unknown]
